FAERS Safety Report 8717183 (Version 3)
Quarter: 2017Q2

REPORT INFORMATION
  Report Type: Spontaneous
  Country: CH (occurrence: CH)
  Receive Date: 20120810
  Receipt Date: 20170519
  Transmission Date: 20170830
  Serious: Yes (Hospitalization, Other)
  Sender: FDA-Public Use
  Company Number: PHHY2012CH067563

PATIENT
  Sex: Female

DRUGS (1)
  1. SANDOSTATIN [Suspect]
     Active Substance: OCTREOTIDE ACETATE
     Indication: MENINGIOMA MALIGNANT
     Dosage: 0.1 MG, TID
     Route: 058

REACTIONS (5)
  - Demyelination [Recovering/Resolving]
  - Paraesthesia [Recovering/Resolving]
  - Central nervous system inflammation [Recovering/Resolving]
  - Encephalomyelitis [Unknown]
  - Product use in unapproved indication [Unknown]
